FAERS Safety Report 21309460 (Version 1)
Quarter: 2022Q3

REPORT INFORMATION
  Report Type: Spontaneous
  Country: US (occurrence: US)
  Receive Date: 20220908
  Receipt Date: 20220908
  Transmission Date: 20221027
  Serious: No
  Sender: FDA-Public Use
  Company Number: US-BRAINTREE LABORATORIES, INC.-2021BTE00964

PATIENT
  Age: 48 Year
  Sex: Female
  Weight: 79.379 kg

DRUGS (6)
  1. SUPREP BOWEL PREP [Suspect]
     Active Substance: MAGNESIUM SULFATE\POTASSIUM SULFATE\SODIUM SULFATE
     Indication: Colonoscopy
     Dosage: 0.5 X 6 OZ. BOTTLE, 1X
     Route: 048
     Dates: start: 20211128, end: 20211128
  2. LANSOPRAZOLE [Concomitant]
     Active Substance: LANSOPRAZOLE
  3. SPIRONOLACTONE [Concomitant]
     Active Substance: SPIRONOLACTONE
  4. IRBESARTAN [Concomitant]
     Active Substance: IRBESARTAN
  5. NALTREXONE [Concomitant]
     Active Substance: NALTREXONE
     Dosage: 50 MG, 2X/DAY
  6. CYCLOBENZAPRINE [Concomitant]
     Active Substance: CYCLOBENZAPRINE

REACTIONS (2)
  - Vomiting [Recovered/Resolved]
  - Product preparation issue [Recovered/Resolved]

NARRATIVE: CASE EVENT DATE: 20211128
